FAERS Safety Report 26117330 (Version 1)
Quarter: 2025Q4

REPORT INFORMATION
  Report Type: Spontaneous
  Country: CN (occurrence: CN)
  Receive Date: 20251203
  Receipt Date: 20251203
  Transmission Date: 20260117
  Serious: Yes (Life-Threatening, Hospitalization, Disabling, Other)
  Sender: SANOFI AVENTIS
  Company Number: CN-SA-2025SA358963

PATIENT
  Age: 7 Week
  Sex: Male
  Weight: 3.65 kg

DRUGS (3)
  1. BEYFORTUS [Suspect]
     Active Substance: NIRSEVIMAB-ALIP
     Indication: Respiratory syncytial virus immunisation
     Dosage: 50 MG, 1X
     Route: 030
     Dates: start: 20251125, end: 20251125
  2. OSELTAMIVIR PHOSPHATE [Suspect]
     Active Substance: OSELTAMIVIR PHOSPHATE
     Indication: Pneumonia
     Dosage: 10 MG, BID
     Route: 048
     Dates: start: 20251121, end: 20251125
  3. OSELTAMIVIR PHOSPHATE [Suspect]
     Active Substance: OSELTAMIVIR PHOSPHATE
     Indication: Influenza

REACTIONS (7)
  - Cyanosis [Recovering/Resolving]
  - Renal impairment [Recovering/Resolving]
  - Mental impairment [Recovering/Resolving]
  - Hepatic function abnormal [Recovering/Resolving]
  - Bradycardia [Recovering/Resolving]
  - Irregular breathing [Recovering/Resolving]
  - Hypotonia [Recovering/Resolving]

NARRATIVE: CASE EVENT DATE: 20251125
